FAERS Safety Report 4572450-4 (Version None)
Quarter: 2005Q1

REPORT INFORMATION
  Report Type: 
  Country: None (occurrence: None)
  Receive Date: 20050207
  Receipt Date: 20040803
  Transmission Date: 20050727
  Serious: Yes (Hospitalization)
  Sender: FDA-Public Use
  Company Number: PL-NOVOPROD-238500

PATIENT
  Age: 70 Year
  Sex: Female
  Weight: 86 kg

DRUGS (8)
  1. NOVOMIX 30 FLEXPEN [Suspect]
     Indication: INSULIN-REQUIRING TYPE II DIABETES MELLITUS
     Dosage: 46 IU, QD
     Route: 058
     Dates: start: 20040506, end: 20040721
  2. NOVOMIX 30 FLEXPEN [Suspect]
     Dosage: 34 IU, QD
     Route: 058
     Dates: start: 20040723, end: 20040728
  3. METFORMIN HCL [Concomitant]
     Indication: DIABETES MELLITUS NON-INSULIN-DEPENDENT
     Dosage: 1000 MG, QD
     Route: 048
     Dates: start: 20040506
  4. BISOPROLOL FUMARATE [Concomitant]
     Dosage: 2.5 MG, QD
     Route: 048
     Dates: start: 20000101
  5. FUROSEMIDE [Concomitant]
     Dosage: 40 MG, QD
     Route: 048
     Dates: start: 20000101
  6. ASPIRIN [Concomitant]
     Dosage: 75 MG, QD
     Route: 048
     Dates: start: 20000101
  7. SIMVASTATIN [Concomitant]
     Dosage: 20 MG, QD
     Route: 048
     Dates: start: 20030101
  8. POTASSIUM CHLORIDE [Concomitant]
     Dosage: 30 MEQ, QD
     Route: 048
     Dates: start: 20000101

REACTIONS (3)
  - DEPRESSED LEVEL OF CONSCIOUSNESS [None]
  - HYPOGLYCAEMIC COMA [None]
  - MENTAL DISORDER [None]
